FAERS Safety Report 9882687 (Version 4)
Quarter: 2014Q2

REPORT INFORMATION
  Report Type: Report from Study
  Country: TW (occurrence: TW)
  Receive Date: 20140207
  Receipt Date: 20140522
  Transmission Date: 20141212
  Serious: Yes (Hospitalization)
  Sender: FDA-Public Use
  Company Number: TW-ABBVIE-14P-153-1196864-00

PATIENT
  Age: 57 Year
  Sex: Female
  Weight: 80 kg

DRUGS (3)
  1. HUMIRA [Suspect]
     Indication: PSORIASIS
     Route: 058
     Dates: start: 20130222, end: 20131209
  2. METHOTREXATE [Concomitant]
     Indication: PSORIASIS
     Dosage: 1#
     Route: 048
     Dates: start: 20060705
  3. ARHEUMA [Concomitant]
     Indication: PSORIASIS
     Dosage: 1#
     Route: 048
     Dates: start: 20060705

REACTIONS (6)
  - Renal failure [Not Recovered/Not Resolved]
  - Urine output decreased [Not Recovered/Not Resolved]
  - Dyspnoea [Not Recovered/Not Resolved]
  - Cardiac failure [Not Recovered/Not Resolved]
  - Meningitis [Not Recovered/Not Resolved]
  - Loss of consciousness [Not Recovered/Not Resolved]
